FAERS Safety Report 14390888 (Version 1)
Quarter: 2018Q1

REPORT INFORMATION
  Report Type: Spontaneous
  Country: MX (occurrence: MX)
  Receive Date: 20180116
  Receipt Date: 20180116
  Transmission Date: 20180509
  Serious: No
  Sender: FDA-Public Use
  Company Number: MX-LUPIN PHARMACEUTICALS INC.-2017-04861

PATIENT
  Age: 2 Year
  Sex: Male
  Weight: 10 kg

DRUGS (4)
  1. CEFDINIR FOR ORAL SUSPENSION [Suspect]
     Active Substance: CEFDINIR
     Indication: NASOPHARYNGITIS
  2. CEFDINIR FOR ORAL SUSPENSION [Suspect]
     Active Substance: CEFDINIR
     Indication: OTITIS MEDIA
     Dosage: UNK
     Route: 048
     Dates: start: 20170728, end: 20170801
  3. CLARITYNE D                        /01202601/ [Concomitant]
     Indication: PRODUCT USED FOR UNKNOWN INDICATION
     Dosage: UNK
     Route: 048
  4. IBUPROFEN. [Concomitant]
     Active Substance: IBUPROFEN
     Indication: PRODUCT USED FOR UNKNOWN INDICATION
     Dosage: UNK
     Route: 048

REACTIONS (1)
  - Faeces discoloured [Recovered/Resolved]
